FAERS Safety Report 23874456 (Version 1)
Quarter: 2024Q2

REPORT INFORMATION
  Report Type: Spontaneous
  Country: US (occurrence: US)
  Receive Date: 20240520
  Receipt Date: 20240520
  Transmission Date: 20240715
  Serious: Yes (Hospitalization)
  Sender: FDA-Public Use
  Company Number: US-MYLANLABS-2024M1044979

PATIENT
  Age: 30 Year
  Sex: Male

DRUGS (1)
  1. VALACYCLOVIR HYDROCHLORIDE [Suspect]
     Active Substance: VALACYCLOVIR HYDROCHLORIDE
     Indication: Herpes virus infection
     Dosage: 250 MILLIGRAM, QD, 10 TABLETS
     Route: 048

REACTIONS (4)
  - Acute kidney injury [Recovered/Resolved]
  - Crystalluria [Unknown]
  - Intentional overdose [Unknown]
  - Intentional product misuse [Unknown]
